FAERS Safety Report 5195247-3 (Version None)
Quarter: 2006Q4

REPORT INFORMATION
  Report Type: 
  Country: None (occurrence: None)
  Receive Date: 20061229
  Receipt Date: 20061106
  Transmission Date: 20070319
  Serious: Yes (Other)
  Sender: FDA-Public Use
  Company Number: US-PFIZER INC-2006139274

PATIENT
  Sex: Male

DRUGS (3)
  1. SUTENT [Suspect]
     Indication: RENAL CELL CARCINOMA STAGE UNSPECIFIED
     Route: 048
  2. MAGNESIUM OXIDE [Concomitant]
  3. CALCIUM [Concomitant]

REACTIONS (10)
  - ANOREXIA [None]
  - BLOOD CALCIUM INCREASED [None]
  - BLOOD PRESSURE INCREASED [None]
  - CHILLS [None]
  - DISSEMINATED INTRAVASCULAR COAGULATION [None]
  - DRUG TOXICITY [None]
  - DYSGEUSIA [None]
  - FATIGUE [None]
  - RENAL IMPAIRMENT [None]
  - THROMBOCYTOPENIA [None]
